FAERS Safety Report 25116445 (Version 2)
Quarter: 2025Q2

REPORT INFORMATION
  Report Type: Spontaneous
  Country: US (occurrence: US)
  Receive Date: 20250325
  Receipt Date: 20250425
  Transmission Date: 20250716
  Serious: No
  Sender: BRISTOL-MYERS SQUIBB COMPANY
  Company Number: US-BRISTOL-MYERS SQUIBB COMPANY-2025-043889

PATIENT
  Age: 83 Year
  Sex: Female
  Weight: 65.77 kg

DRUGS (1)
  1. POMALYST [Suspect]
     Active Substance: POMALIDOMIDE
     Indication: Plasma cell myeloma
     Dosage: FREQ:  3WEEKS ON, 1 WEEK OFF
     Route: 048

REACTIONS (2)
  - Rash macular [Not Recovered/Not Resolved]
  - Fatigue [Not Recovered/Not Resolved]
